FAERS Safety Report 12756058 (Version 1)
Quarter: 2016Q3

REPORT INFORMATION
  Report Type: Spontaneous
  Country: AR (occurrence: AR)
  Receive Date: 20160916
  Receipt Date: 20160916
  Transmission Date: 20161109
  Serious: Yes (Other)
  Sender: FDA-Public Use
  Company Number: AR-FRESENIUS KABI-FK201606587

PATIENT
  Age: 60 Year
  Sex: Female
  Weight: 52 kg

DRUGS (15)
  1. CALCIUM GLUCONATE. [Suspect]
     Active Substance: CALCIUM GLUCONATE
     Indication: PARENTERAL NUTRITION
     Route: 042
  2. ZINC SULFATE [Suspect]
     Active Substance: ZINC SULFATE\ZINC SULFATE ANHYDROUS
     Indication: PARENTERAL NUTRITION
     Route: 042
  3. CROMO KABI 4 MCG / ML [Suspect]
     Active Substance: CHROMIC CHLORIDE
     Indication: PARENTERAL NUTRITION
     Route: 042
  4. GLYCOPHOS [Suspect]
     Active Substance: SODIUM GLYCEROPHOSPHATE ANHYDROUS
     Indication: PARENTERAL NUTRITION
     Route: 042
  5. AMINOVEN 15% [Suspect]
     Active Substance: AMINO ACIDS
     Indication: PARENTERAL NUTRITION
     Route: 042
  6. POTASSIUM CHLORIDE. [Suspect]
     Active Substance: POTASSIUM CHLORIDE
     Indication: PARENTERAL NUTRITION
     Route: 042
  7. MOLYBDENUM [Suspect]
     Active Substance: MOLYBDENUM
     Indication: PARENTERAL NUTRITION
     Route: 042
  8. SELENIO KABI 40 MCG / ML [Suspect]
     Active Substance: SODIUM SELENITE
     Indication: PARENTERAL NUTRITION
     Route: 042
  9. SOLUVIT [Suspect]
     Active Substance: VITAMINS
     Indication: PARENTERAL NUTRITION
     Route: 042
  10. VITALIPID ADULT (VITAMINS) (VITAMINS) [Suspect]
     Active Substance: ERGOCALCIFEROL\PHYTONADIONE\RETINOL\TOCOPHEROL
     Indication: PARENTERAL NUTRITION
     Route: 042
  11. DEXTROSE. [Suspect]
     Active Substance: DEXTROSE
     Indication: PARENTERAL NUTRITION
     Route: 042
  12. SODIUM CHLORIDE. [Suspect]
     Active Substance: SODIUM CHLORIDE
     Indication: PARENTERAL NUTRITION
     Route: 042
  13. MAGNESIUM SULPHATE (NOT SPECIFIED) [Suspect]
     Active Substance: MAGNESIUM SULFATE
     Indication: PARENTERAL NUTRITION
     Route: 042
  14. SMOFLIPID [Suspect]
     Active Substance: FISH OIL\MEDIUM-CHAIN TRIGLYCERIDES\OLIVE OIL\SOYBEAN OIL
     Indication: PARENTERAL NUTRITION
     Route: 042
  15. WATER. [Suspect]
     Active Substance: WATER
     Indication: PARENTERAL NUTRITION
     Route: 042

REACTIONS (2)
  - Pantoea agglomerans infection [Unknown]
  - Bacteraemia [None]

NARRATIVE: CASE EVENT DATE: 20160903
